FAERS Safety Report 21064160 (Version 1)
Quarter: 2022Q3

REPORT INFORMATION
  Report Type: Spontaneous
  Country: US (occurrence: None)
  Receive Date: 20220708
  Receipt Date: 20220708
  Transmission Date: 20221027
  Serious: No
  Sender: FDA-Public Use
  Company Number: None

PATIENT
  Sex: Male

DRUGS (2)
  1. IMATINIB [Suspect]
     Active Substance: IMATINIB
     Indication: Chronic myeloid leukaemia
     Dosage: 400MG DAILY ORAL?
     Route: 048
  2. IMATINIB [Suspect]
     Active Substance: IMATINIB
     Indication: Philadelphia chromosome positive

REACTIONS (7)
  - Philadelphia chromosome positive [None]
  - Philadelphia chromosome positive [None]
  - Drug resistance [None]
  - Cough [None]
  - Pulmonary congestion [None]
  - Productive cough [None]
  - Disease progression [None]
